FAERS Safety Report 9849085 (Version 1)
Quarter: 2014Q1

REPORT INFORMATION
  Report Type: Spontaneous
  Country: BR (occurrence: None)
  Receive Date: 20140124
  Receipt Date: 20140124
  Transmission Date: 20141002
  Serious: Yes (Hospitalization, Other)
  Sender: FDA-Public Use
  Company Number: AUR-APL-2014-00589

PATIENT
  Age: 61 Year
  Sex: Male
  Weight: 87 kg

DRUGS (6)
  1. ATENOLOL [Suspect]
     Indication: PRODUCT USED FOR UNKNOWN INDICATION
     Dates: start: 201308
  2. ROSUVASTATIN CALCIUM [Suspect]
     Indication: PRODUCT USED FOR UNKNOWN INDICATION
     Route: 048
     Dates: start: 201308
  3. ATACAND (CANDESARTAN CILEXETIL) [Suspect]
     Indication: HYPERTENSION
     Route: 048
     Dates: start: 2013
  4. BRILINTA (TICAGRELOR) [Suspect]
     Indication: PRODUCT USED FOR UNKNOWN INDICATION
     Dosage: 180MG (90MG, 2 IN 1 D), UNKNOWN
     Dates: start: 201308
  5. ASPIRINE (ACETYLSALICYLIC ACID) [Concomitant]
  6. PANTOPRAZOLE (PANTOPRAZOLE) [Concomitant]

REACTIONS (8)
  - Fatigue [None]
  - Chest pain [None]
  - Myocardial ischaemia [None]
  - Coronary artery occlusion [None]
  - Nervousness [None]
  - Blood pressure increased [None]
  - Drug ineffective [None]
  - Blood pressure decreased [None]
